FAERS Safety Report 10202433 (Version 1)
Quarter: 2014Q2

REPORT INFORMATION
  Report Type: Spontaneous
  Country: US (occurrence: US)
  Receive Date: 20140528
  Receipt Date: 20140528
  Transmission Date: 20141212
  Serious: Yes (Other)
  Sender: FDA-Public Use
  Company Number: US-FRI-1000067504

PATIENT
  Age: 33 Year
  Sex: Male

DRUGS (3)
  1. FETZIMA [Suspect]
     Indication: DEPRESSION
     Dosage: 40 MG
     Route: 048
     Dates: start: 20140425, end: 20140501
  2. FETZIMA [Suspect]
     Dosage: 80 MG
     Route: 048
     Dates: start: 20140502
  3. ADDERALL [Concomitant]
     Indication: ATTENTION DEFICIT/HYPERACTIVITY DISORDER
     Dosage: 20 MG
     Route: 048

REACTIONS (2)
  - Sinusitis [Recovered/Resolved]
  - Testicular pain [Not Recovered/Not Resolved]
